FAERS Safety Report 11123649 (Version 1)
Quarter: 2015Q2

REPORT INFORMATION
  Report Type: Spontaneous
  Country: JP (occurrence: JP)
  Receive Date: 20150519
  Receipt Date: 20150519
  Transmission Date: 20150821
  Serious: Yes (Other)
  Sender: FDA-Public Use
  Company Number: JP-B.I. PHARMACEUTICALS,INC./RIDGEFIELD-2015-BI-06964NB

PATIENT
  Age: 71 Year
  Sex: Female
  Weight: 53 kg

DRUGS (14)
  1. ASTOMIN [Suspect]
     Active Substance: DIMEMORFAN
     Indication: COUGH
     Dosage: 6 ANZ
     Route: 048
  2. JANUVIA [Suspect]
     Active Substance: SITAGLIPTIN PHOSPHATE
     Indication: DIABETES MELLITUS
     Dosage: 1 ANZ
     Route: 048
  3. ALFAROL [Suspect]
     Active Substance: ALFACALCIDOL
     Indication: OSTEOPOROSIS
     Dosage: 1 ANZ
     Route: 048
  4. LORCAM [Suspect]
     Active Substance: LORNOXICAM
     Indication: BACK PAIN
     Dosage: 3 ANZ
     Route: 048
  5. CONIEL [Suspect]
     Active Substance: BENIDIPINE HYDROCHLORIDE
     Indication: HYPERTENSION
     Dosage: 1 ANZ
     Route: 048
  6. GASMOTIN [Suspect]
     Active Substance: MOSAPRIDE CITRATE
     Indication: GASTRIC DISORDER
     Dosage: 3 ANZ
     Route: 048
  7. GILOTRIF [Suspect]
     Active Substance: AFATINIB
     Indication: LUNG ADENOCARCINOMA
     Dosage: 30 MG
     Route: 048
     Dates: start: 20150203, end: 20150206
  8. HUSCODE [Suspect]
     Active Substance: CHLORPHENIRAMINE MALEAT\DIHYDROCODEINE PHOSPHATE\METHYLEPHEDRINE HYDROCHLORIDE, DL-
     Indication: COUGH
     Dosage: 3 ANZ
     Route: 048
  9. CRESTOR [Suspect]
     Active Substance: ROSUVASTATIN CALCIUM
     Indication: DYSLIPIDAEMIA
     Dosage: 1 ANZ
     Route: 048
  10. DIHYDROCODEINE PHOSPHATE [Suspect]
     Active Substance: DIHYDROCODEINE PHOSPHATE
     Indication: COUGH
     Route: 048
  11. OMEPRAZOLE. [Suspect]
     Active Substance: OMEPRAZOLE
     Indication: GASTRIC DISORDER
     Dosage: 2 ANZ
     Route: 048
  12. GILOTRIF [Suspect]
     Active Substance: AFATINIB
     Dosage: 30 MG
     Route: 048
     Dates: start: 20150207
  13. SOLON [Suspect]
     Active Substance: SOFALCONE
     Indication: GASTRIC DISORDER
     Dosage: 3 ANZ
     Route: 048
  14. REBAMIPIDE [Suspect]
     Active Substance: REBAMIPIDE
     Indication: GASTRIC DISORDER
     Dosage: 3 ANZ
     Route: 048

REACTIONS (1)
  - Angina unstable [Recovered/Resolved]

NARRATIVE: CASE EVENT DATE: 20150206
